FAERS Safety Report 26185577 (Version 1)
Quarter: 2025Q4

REPORT INFORMATION
  Report Type: Spontaneous
  Country: GB (occurrence: GB)
  Receive Date: 20251222
  Receipt Date: 20251222
  Transmission Date: 20260117
  Serious: Yes (Life-Threatening, Hospitalization, Other)
  Sender: MYLAN
  Company Number: GB-MYLANLABS-2025M1106171

PATIENT
  Sex: Female

DRUGS (40)
  1. HYDROCORTISONE [Suspect]
     Active Substance: HYDROCORTISONE
     Indication: Adrenal insufficiency
     Dosage: UNK
  2. HYDROCORTISONE [Suspect]
     Active Substance: HYDROCORTISONE
     Dosage: UNK
     Route: 065
  3. HYDROCORTISONE [Suspect]
     Active Substance: HYDROCORTISONE
     Dosage: UNK
     Route: 065
  4. HYDROCORTISONE [Suspect]
     Active Substance: HYDROCORTISONE
     Dosage: UNK
  5. AZATHIOPRINE [Suspect]
     Active Substance: AZATHIOPRINE
     Indication: Rheumatoid arthritis
     Dosage: UNK
  6. AZATHIOPRINE [Suspect]
     Active Substance: AZATHIOPRINE
     Dosage: UNK
     Route: 065
  7. AZATHIOPRINE [Suspect]
     Active Substance: AZATHIOPRINE
     Dosage: UNK
     Route: 065
  8. AZATHIOPRINE [Suspect]
     Active Substance: AZATHIOPRINE
     Dosage: UNK
  9. POSACONAZOLE [Suspect]
     Active Substance: POSACONAZOLE
     Indication: Disseminated coccidioidomycosis
     Dosage: 400 MILLIGRAM, BID
     Route: 061
  10. POSACONAZOLE [Suspect]
     Active Substance: POSACONAZOLE
     Indication: Arthritis infective
     Dosage: 400 MILLIGRAM, BID
     Route: 048
  11. POSACONAZOLE [Suspect]
     Active Substance: POSACONAZOLE
     Indication: Coccidioidomycosis
     Dosage: 400 MILLIGRAM, BID
     Route: 048
  12. POSACONAZOLE [Suspect]
     Active Substance: POSACONAZOLE
     Indication: Device related infection
     Dosage: 400 MILLIGRAM, BID
     Route: 061
  13. VORICONAZOLE [Suspect]
     Active Substance: VORICONAZOLE
     Indication: Disseminated coccidioidomycosis
     Dosage: UNK
  14. VORICONAZOLE [Suspect]
     Active Substance: VORICONAZOLE
     Indication: Arthritis infective
     Dosage: UNK
     Route: 042
  15. VORICONAZOLE [Suspect]
     Active Substance: VORICONAZOLE
     Indication: Coccidioidomycosis
     Dosage: UNK
     Route: 042
  16. VORICONAZOLE [Suspect]
     Active Substance: VORICONAZOLE
     Indication: Device related infection
     Dosage: UNK
  17. METHOTREXATE [Suspect]
     Active Substance: METHOTREXATE
     Indication: Rheumatoid arthritis
     Dosage: UNK
  18. METHOTREXATE [Suspect]
     Active Substance: METHOTREXATE
     Dosage: UNK
     Route: 065
  19. METHOTREXATE [Suspect]
     Active Substance: METHOTREXATE
     Dosage: UNK
     Route: 065
  20. METHOTREXATE [Suspect]
     Active Substance: METHOTREXATE
     Dosage: UNK
  21. AMBISOME [Suspect]
     Active Substance: AMPHOTERICIN B
     Indication: Disseminated coccidioidomycosis
     Dosage: 3 MILLIGRAM/KILOGRAM
  22. AMBISOME [Suspect]
     Active Substance: AMPHOTERICIN B
     Indication: Device related infection
     Dosage: 3 MILLIGRAM/KILOGRAM
     Route: 042
  23. AMBISOME [Suspect]
     Active Substance: AMPHOTERICIN B
     Indication: Coccidioidomycosis
     Dosage: 3 MILLIGRAM/KILOGRAM
     Route: 042
  24. AMBISOME [Suspect]
     Active Substance: AMPHOTERICIN B
     Indication: Arthritis infective
     Dosage: 3 MILLIGRAM/KILOGRAM
  25. HYDROXYCHLOROQUINE [Suspect]
     Active Substance: HYDROXYCHLOROQUINE
     Indication: Rheumatoid arthritis
     Dosage: UNK
  26. HYDROXYCHLOROQUINE [Suspect]
     Active Substance: HYDROXYCHLOROQUINE
     Dosage: UNK
     Route: 065
  27. HYDROXYCHLOROQUINE [Suspect]
     Active Substance: HYDROXYCHLOROQUINE
     Dosage: UNK
     Route: 065
  28. HYDROXYCHLOROQUINE [Suspect]
     Active Substance: HYDROXYCHLOROQUINE
     Dosage: UNK
  29. PREDNISOLONE [Suspect]
     Active Substance: PREDNISOLONE
     Indication: Rheumatoid arthritis
     Dosage: UNK,  DRUG THERAPY DISCONTINUED AND REINITIATED AND CONTINUED THEREAFTER
  30. PREDNISOLONE [Suspect]
     Active Substance: PREDNISOLONE
     Indication: Rheumatoid arthritis
     Dosage: UNK,  DRUG THERAPY DISCONTINUED AND REINITIATED AND CONTINUED THEREAFTER
  31. PREDNISOLONE [Suspect]
     Active Substance: PREDNISOLONE
     Dosage: UNK,  DRUG THERAPY DISCONTINUED AND REINITIATED AND CONTINUED THEREAFTER
     Route: 065
  32. PREDNISOLONE [Suspect]
     Active Substance: PREDNISOLONE
     Dosage: UNK,  DRUG THERAPY DISCONTINUED AND REINITIATED AND CONTINUED THEREAFTER
     Route: 065
  33. PREDNISOLONE [Suspect]
     Active Substance: PREDNISOLONE
     Dosage: UNK,  REINITIATED AND CONTINUED THEREAFTER
  34. PREDNISOLONE [Suspect]
     Active Substance: PREDNISOLONE
     Dosage: UNK,  REINITIATED AND CONTINUED THEREAFTER
  35. PREDNISOLONE [Suspect]
     Active Substance: PREDNISOLONE
     Dosage: UNK,  REINITIATED AND CONTINUED THEREAFTER
     Route: 065
  36. PREDNISOLONE [Suspect]
     Active Substance: PREDNISOLONE
     Dosage: UNK,  REINITIATED AND CONTINUED THEREAFTER
     Route: 065
  37. PIPERACILLIN SODIUM\TAZOBACTAM SODIUM [Concomitant]
     Active Substance: PIPERACILLIN SODIUM\TAZOBACTAM SODIUM
     Indication: Evidence based treatment
     Dosage: UNK
  38. PIPERACILLIN SODIUM\TAZOBACTAM SODIUM [Concomitant]
     Active Substance: PIPERACILLIN SODIUM\TAZOBACTAM SODIUM
     Dosage: UNK
     Route: 065
  39. PIPERACILLIN SODIUM\TAZOBACTAM SODIUM [Concomitant]
     Active Substance: PIPERACILLIN SODIUM\TAZOBACTAM SODIUM
     Dosage: UNK
     Route: 065
  40. PIPERACILLIN SODIUM\TAZOBACTAM SODIUM [Concomitant]
     Active Substance: PIPERACILLIN SODIUM\TAZOBACTAM SODIUM
     Dosage: UNK

REACTIONS (14)
  - Disseminated coccidioidomycosis [Recovering/Resolving]
  - Device related infection [Recovering/Resolving]
  - Arthritis infective [Recovering/Resolving]
  - Coccidioidomycosis [Recovering/Resolving]
  - Septic shock [Unknown]
  - Metabolic acidosis [Unknown]
  - Rheumatoid arthritis [Unknown]
  - Escherichia infection [Unknown]
  - Urosepsis [Unknown]
  - Lower respiratory tract infection [Unknown]
  - Herpes zoster [Unknown]
  - Electrolyte imbalance [Unknown]
  - Neuropathy peripheral [Unknown]
  - Drug intolerance [Unknown]
